FAERS Safety Report 12632095 (Version 2)
Quarter: 2016Q3

REPORT INFORMATION
  Report Type: Spontaneous
  Country: US (occurrence: US)
  Receive Date: 20160808
  Receipt Date: 20160808
  Transmission Date: 20161109
  Serious: No
  Sender: FDA-Public Use
  Company Number: US-BEH-2016061873

PATIENT
  Age: 59 Year
  Sex: Female
  Weight: 98 kg

DRUGS (32)
  1. PROMETHAZINE-DM [Concomitant]
  2. PREDNISONE. [Concomitant]
     Active Substance: PREDNISONE
  3. ALLEGRA [Concomitant]
     Active Substance: FEXOFENADINE HYDROCHLORIDE
  4. DIPHENHYDRAMINE. [Concomitant]
     Active Substance: DIPHENHYDRAMINE
  5. CHERATUSSIN AC [Concomitant]
     Active Substance: CODEINE PHOSPHATE\GUAIFENESIN
  6. VENTOLIN [Concomitant]
     Active Substance: ALBUTEROL SULFATE
  7. VITAMIN B-100 COMPLEX [Concomitant]
  8. STOOL SOFTENER [Concomitant]
     Active Substance: DOCUSATE CALCIUM
  9. DAILY MULTIVITAMIN [Concomitant]
     Active Substance: VITAMINS
  10. EPIPEN [Concomitant]
     Active Substance: EPINEPHRINE
  11. LOTREL [Concomitant]
     Active Substance: AMLODIPINE BESYLATE\BENAZEPRIL HYDROCHLORIDE
  12. HCTZ [Concomitant]
     Active Substance: HYDROCHLOROTHIAZIDE
  13. CORTISONE [Concomitant]
     Active Substance: CORTISONE\HYDROCORTISONE
  14. ZYRTEC-D [Concomitant]
     Active Substance: CETIRIZINE HYDROCHLORIDE\PSEUDOEPHEDRINE HYDROCHLORIDE
  15. SINGULAIR [Concomitant]
     Active Substance: MONTELUKAST SODIUM
  16. NEXIUM [Concomitant]
     Active Substance: ESOMEPRAZOLE MAGNESIUM
  17. HYDROCODONE-ACETAMINOPHEN [Concomitant]
     Active Substance: ACETAMINOPHEN\HYDROCODONE
  18. POTASSIUM GLUC [Concomitant]
  19. HIZENTRA [Suspect]
     Active Substance: HUMAN IMMUNOGLOBULIN G
     Indication: IMMUNODEFICIENCY COMMON VARIABLE
     Route: 058
  20. MOBIC [Concomitant]
     Active Substance: MELOXICAM
  21. VITAMIN E [Concomitant]
     Active Substance: .ALPHA.-TOCOPHEROL
  22. DYMISTA [Concomitant]
     Active Substance: AZELASTINE HYDROCHLORIDE\FLUTICASONE PROPIONATE
  23. DULERA [Concomitant]
     Active Substance: FORMOTEROL FUMARATE DIHYDRATE\MOMETASONE FUROATE
  24. ACETAMINOPHEN. [Concomitant]
     Active Substance: ACETAMINOPHEN
  25. COQ10 [Concomitant]
     Active Substance: UBIDECARENONE
  26. CRANBERRY. [Concomitant]
     Active Substance: CRANBERRY
  27. NEURONTIN [Concomitant]
     Active Substance: GABAPENTIN
  28. DIAZEPAM. [Concomitant]
     Active Substance: DIAZEPAM
  29. ESTRACE [Concomitant]
     Active Substance: ESTRADIOL
  30. FISH OIL [Concomitant]
     Active Substance: FISH OIL
  31. PENICILLIN [Concomitant]
     Active Substance: PENICILLIN
  32. TEKTURNA [Concomitant]
     Active Substance: ALISKIREN HEMIFUMARATE

REACTIONS (5)
  - Back pain [Unknown]
  - Nausea [Unknown]
  - Abdominal distension [Unknown]
  - Sinusitis [Unknown]
  - Administration site erythema [Unknown]

NARRATIVE: CASE EVENT DATE: 20160208
